FAERS Safety Report 18701354 (Version 1)
Quarter: 2021Q1

REPORT INFORMATION
  Report Type: Spontaneous
  Country: US (occurrence: US)
  Receive Date: 20210105
  Receipt Date: 20210105
  Transmission Date: 20210419
  Serious: No
  Sender: FDA-Public Use
  Company Number: None

PATIENT
  Age: 34 Year
  Sex: Male

DRUGS (4)
  1. ALYQ [Concomitant]
     Active Substance: TADALAFIL
  2. SYNTHROID [Concomitant]
     Active Substance: LEVOTHYROXINE SODIUM
  3. AMBRISENTAN [Suspect]
     Active Substance: AMBRISENTAN
     Indication: PULMONARY ARTERIAL HYPERTENSION
     Route: 048
  4. HEPARIN [Concomitant]
     Active Substance: HEPARIN SODIUM

REACTIONS (2)
  - Agitation [None]
  - Oxygen saturation decreased [None]

NARRATIVE: CASE EVENT DATE: 20210105
